FAERS Safety Report 7141937-2 (Version None)
Quarter: 2010Q4

REPORT INFORMATION
  Report Type: 
  Country: None (occurrence: None)
  Receive Date: 20101207
  Receipt Date: 20101123
  Transmission Date: 20110411
  Serious: Yes (Hospitalization)
  Sender: FDA-Public Use
  Company Number: DE-AMGEN-DEUNI2010003306

PATIENT

DRUGS (10)
  1. DARBEPOETIN ALFA [Suspect]
     Indication: RENAL FAILURE CHRONIC
     Dosage: 15 A?G, QWK
     Route: 042
     Dates: start: 20040827
  2. CYSTEINE [Concomitant]
     Dosage: 180 MG, UNK
  3. PREDNISONE [Concomitant]
     Dosage: 5 MG, UNK
  4. BICANORM                           /00049401/ [Concomitant]
  5. ROCALTROL [Concomitant]
     Dosage: 0.25 A?G, UNK
  6. CALCIUM [Concomitant]
     Dosage: 1200 MG, UNK
  7. LEVOTHYROXINE SODIUM [Concomitant]
     Dosage: 100 A?G, UNK
  8. CALCIUM ACETATE [Concomitant]
     Dosage: 1 G, UNK
  9. GONATROPIN [Concomitant]
     Dosage: 2 MG, UNK
  10. FERRLECIT                          /00345601/ [Concomitant]
     Dosage: 40 MG, UNK

REACTIONS (2)
  - HLA MARKER STUDY [None]
  - HLA MARKER STUDY POSITIVE [None]
